FAERS Safety Report 10442482 (Version 2)
Quarter: 2015Q1

REPORT INFORMATION
  Report Type: Spontaneous
  Country: US (occurrence: None)
  Receive Date: 20140908
  Receipt Date: 20150223
  Transmission Date: 20150720
  Serious: Yes (Life-Threatening, Hospitalization)
  Sender: FDA-Public Use
  Company Number: 1713747-2014-999128

PATIENT
  Age: 55 Year
  Sex: Male
  Weight: 99.4 kg

DRUGS (3)
  1. LIBERTY CYCLER [Concomitant]
     Active Substance: DEVICE
  2. LIBERTY CYCLER CASSETTE [Concomitant]
     Active Substance: DEVICE
  3. DELFLEX [Suspect]
     Active Substance: CALCIUM CHLORIDE\DEXTROSE MONOHYDRATE\MAGNESIUM CHLORIDE\SODIUM CHLORIDE\SODIUM LACTATE
     Indication: PERITONEAL DIALYSIS
     Dosage: UNK
     Dates: start: 20130405, end: 20131103

REACTIONS (1)
  - Peritonitis [None]

NARRATIVE: CASE EVENT DATE: 20130405
